FAERS Safety Report 6610993-X (Version None)
Quarter: 2010Q1

REPORT INFORMATION
  Report Type: 
  Country: None (occurrence: None)
  Receive Date: 20100222
  Receipt Date: 20100212
  Transmission Date: 20100710
  Serious: Yes (Hospitalization, Other)
  Sender: FDA-Public Use
  Company Number: A-JP2008-21360

PATIENT
  Age: 61 Year
  Sex: Female
  Weight: 48 kg

DRUGS (19)
  1. TRACLEER [Suspect]
     Indication: PULMONARY HYPERTENSION
     Dosage: 62.5 MG, BID, ORAL 62.5 MG, BID, ORAL 125 MG, BID, ORAL 31.25 MG, BID, ORAL 62.5 MG, BID, ORAL 66.4
     Route: 048
     Dates: start: 20080530, end: 20080702
  2. TRACLEER [Suspect]
     Indication: PULMONARY HYPERTENSION
     Dosage: 62.5 MG, BID, ORAL 62.5 MG, BID, ORAL 125 MG, BID, ORAL 31.25 MG, BID, ORAL 62.5 MG, BID, ORAL 66.4
     Route: 048
     Dates: start: 20080703, end: 20080706
  3. TRACLEER [Suspect]
     Indication: PULMONARY HYPERTENSION
     Dosage: 62.5 MG, BID, ORAL 62.5 MG, BID, ORAL 125 MG, BID, ORAL 31.25 MG, BID, ORAL 62.5 MG, BID, ORAL 66.4
     Route: 048
     Dates: start: 20080707, end: 20080711
  4. TRACLEER [Suspect]
     Indication: PULMONARY HYPERTENSION
     Dosage: 62.5 MG, BID, ORAL 62.5 MG, BID, ORAL 125 MG, BID, ORAL 31.25 MG, BID, ORAL 62.5 MG, BID, ORAL 66.4
     Route: 048
     Dates: start: 20080712, end: 20080807
  5. TRACLEER [Suspect]
     Indication: PULMONARY HYPERTENSION
     Dosage: 62.5 MG, BID, ORAL 62.5 MG, BID, ORAL 125 MG, BID, ORAL 31.25 MG, BID, ORAL 62.5 MG, BID, ORAL 66.4
     Route: 048
     Dates: start: 20080808, end: 20090316
  6. TRACLEER [Suspect]
     Indication: PULMONARY HYPERTENSION
     Dosage: 62.5 MG, BID, ORAL 62.5 MG, BID, ORAL 125 MG, BID, ORAL 31.25 MG, BID, ORAL 62.5 MG, BID, ORAL 66.4
     Route: 048
     Dates: start: 20090317, end: 20090317
  7. TRACLEER [Suspect]
     Indication: PULMONARY HYPERTENSION
     Dosage: 62.5 MG, BID, ORAL 62.5 MG, BID, ORAL 125 MG, BID, ORAL 31.25 MG, BID, ORAL 62.5 MG, BID, ORAL 66.4
     Route: 048
     Dates: start: 20080318, end: 20090713
  8. TRACLEER [Suspect]
     Indication: PULMONARY HYPERTENSION
     Dosage: 62.5 MG, BID, ORAL 62.5 MG, BID, ORAL 125 MG, BID, ORAL 31.25 MG, BID, ORAL 62.5 MG, BID, ORAL 66.4
     Route: 048
     Dates: start: 20090714, end: 20090714
  9. TRACLEER [Suspect]
     Indication: PULMONARY HYPERTENSION
     Dosage: 62.5 MG, BID, ORAL 62.5 MG, BID, ORAL 125 MG, BID, ORAL 31.25 MG, BID, ORAL 62.5 MG, BID, ORAL 66.4
     Route: 048
     Dates: start: 20090715, end: 20090824
  10. TRACLEER [Suspect]
     Indication: PULMONARY HYPERTENSION
     Dosage: 62.5 MG, BID, ORAL 62.5 MG, BID, ORAL 125 MG, BID, ORAL 31.25 MG, BID, ORAL 62.5 MG, BID, ORAL 66.4
     Route: 048
     Dates: start: 20090825, end: 20090825
  11. TRACLEER [Suspect]
     Indication: PULMONARY HYPERTENSION
     Dosage: 62.5 MG, BID, ORAL 62.5 MG, BID, ORAL 125 MG, BID, ORAL 31.25 MG, BID, ORAL 62.5 MG, BID, ORAL 66.4
     Route: 048
     Dates: start: 20090826, end: 20090903
  12. TRACLEER [Suspect]
     Indication: PULMONARY HYPERTENSION
     Dosage: 62.5 MG, BID, ORAL 62.5 MG, BID, ORAL 125 MG, BID, ORAL 31.25 MG, BID, ORAL 62.5 MG, BID, ORAL 66.4
     Route: 048
     Dates: start: 20090904, end: 20090904
  13. TRACLEER [Suspect]
     Indication: PULMONARY HYPERTENSION
     Dosage: 62.5 MG, BID, ORAL 62.5 MG, BID, ORAL 125 MG, BID, ORAL 31.25 MG, BID, ORAL 62.5 MG, BID, ORAL 66.4
     Route: 048
     Dates: start: 20090905
  14. WARFARIN POTASSIUM (WARFARIN POTASSIUM) [Concomitant]
  15. TORSEMIDE [Concomitant]
  16. AZELNIDIPINE (AZELNIDIPINE) [Concomitant]
  17. SPIRONOLACTONE [Concomitant]
  18. SULFAMETHOXAZOLE AND TRIMETHOPRIM (TRIMETHOPRIM, SULFAMETHOXAZOLE) [Concomitant]
  19. OXYGEN (OXYGEN) [Concomitant]

REACTIONS (6)
  - ALANINE AMINOTRANSFERASE INCREASED [None]
  - ASPARTATE AMINOTRANSFERASE INCREASED [None]
  - EPISTAXIS [None]
  - GAMMA-GLUTAMYLTRANSFERASE INCREASED [None]
  - OFF LABEL USE [None]
  - PULMONARY HAEMORRHAGE [None]
